FAERS Safety Report 9264969 (Version 2)
Quarter: 2014Q1

REPORT INFORMATION
  Report Type: Spontaneous
  Country: JP (occurrence: JP)
  Receive Date: 20130501
  Receipt Date: 20140307
  Transmission Date: 20141002
  Serious: No
  Sender: FDA-Public Use
  Company Number: JP-ACCORD-017442

PATIENT
  Age: 53 Year
  Sex: Female

DRUGS (3)
  1. GEMCITABINE/GEMCITABINE HYDROCHLORIDE [Suspect]
     Indication: OVARIAN CANCER RECURRENT
     Dosage: THREE WEEKS ON AND ONE WEEK OFF, Q4 WEEKS
  2. OXALIPLATIN [Suspect]
     Indication: OVARIAN CANCER RECURRENT
     Dosage: THREE WEEKS ON AND ONE WEEK OFF, Q4 WEEKS
  3. BEVACIZUMAB [Suspect]
     Indication: OVARIAN CANCER RECURRENT
     Dosage: THREE WEEKS ON AND ONE WEEK OFF, Q4 WEEKS

REACTIONS (3)
  - Nausea [Unknown]
  - Epistaxis [Unknown]
  - Dysgeusia [Unknown]
